FAERS Safety Report 24422721 (Version 1)
Quarter: 2024Q4

REPORT INFORMATION
  Report Type: Spontaneous
  Country: US (occurrence: None)
  Receive Date: 20241009
  Receipt Date: 20241009
  Transmission Date: 20250115
  Serious: No
  Sender: Public
  Company Number: None

PATIENT

DRUGS (1)
  1. ANIOSGEL 85 NPC [Suspect]
     Active Substance: ALCOHOL

REACTIONS (1)
  - Rash [None]
